FAERS Safety Report 7920221-0 (Version None)
Quarter: 2011Q4

REPORT INFORMATION
  Report Type: 
  Country: None (occurrence: None)
  Receive Date: 20111115
  Receipt Date: 20111104
  Transmission Date: 20120403
  Serious: Yes (Other)
  Sender: FDA-Public Use
  Company Number: TPA2011A06621

PATIENT
  Age: 73 Year
  Sex: Male
  Weight: 94.575 kg

DRUGS (1)
  1. ACTOPLUS MET [Suspect]
     Indication: TYPE 2 DIABETES MELLITUS
     Dosage: 1 IN 1 D
     Dates: start: 20080520, end: 20110819

REACTIONS (1)
  - BLADDER CANCER [None]
